FAERS Safety Report 23586929 (Version 2)
Quarter: 2025Q4

REPORT INFORMATION
  Report Type: Spontaneous
  Country: AU (occurrence: AU)
  Receive Date: 20240301
  Receipt Date: 20251117
  Transmission Date: 20260118
  Serious: Yes (Hospitalization, Other)
  Sender: ALEXION PHARMACEUTICALS
  Company Number: None

PATIENT
  Sex: Female

DRUGS (29)
  1. QUETIAPINE FUMARATE [Suspect]
     Active Substance: QUETIAPINE FUMARATE
     Indication: Short-chain acyl-coenzyme A dehydrogenase deficiency
     Dosage: 400 MILLIGRAM, QD
  2. QUETIAPINE FUMARATE [Suspect]
     Active Substance: QUETIAPINE FUMARATE
     Indication: Psychotic disorder
     Dosage: 50 MILLIGRAM, QD
  3. QUETIAPINE FUMARATE [Suspect]
     Active Substance: QUETIAPINE FUMARATE
     Indication: Agitation
     Dosage: 4 DOSAGE FORM, QD
  4. QUETIAPINE FUMARATE [Suspect]
     Active Substance: QUETIAPINE FUMARATE
     Indication: Schizoaffective disorder
     Dosage: 100 MILLIGRAM, QD
  5. QUETIAPINE FUMARATE [Suspect]
     Active Substance: QUETIAPINE FUMARATE
     Dosage: 750 MILLIGRAM
  6. QUETIAPINE FUMARATE [Suspect]
     Active Substance: QUETIAPINE FUMARATE
     Dosage: 200 MILLIGRAM, QD
  7. CARBAMAZEPINE [Suspect]
     Active Substance: CARBAMAZEPINE
     Indication: Schizoaffective disorder
     Dosage: UNK
     Route: 065
  8. MIRTAZAPINE [Suspect]
     Active Substance: MIRTAZAPINE
     Indication: Depression
     Dosage: UNK
     Route: 065
  9. VALPROATE SODIUM [Suspect]
     Active Substance: VALPROATE SODIUM
     Indication: Schizoaffective disorder
     Dosage: DOSE: 2000 MILLIGRAM; INTERVAL: 1 DAY; ROUTE OF ADMINISTRATION: INFORMATION NOT PROVIDED BY  SPONSOR
     Route: 065
  10. VALPROATE SODIUM [Suspect]
     Active Substance: VALPROATE SODIUM
     Indication: Parkinsonian crisis
  11. EMPAGLIFLOZIN\METFORMIN HYDROCHLORIDE [Concomitant]
     Active Substance: EMPAGLIFLOZIN\METFORMIN HYDROCHLORIDE
     Indication: Product used for unknown indication
     Dosage: 2 DOSAGE FORM
  12. MOVICOL [Concomitant]
     Active Substance: POLYETHYLENE GLYCOL 3350\POTASSIUM CHLORIDE\SODIUM BICARBONATE\SODIUM CHLORIDE
     Indication: Constipation
     Dosage: DOSE: 4 DOSE UNSPECIFIED; INTERVAL: 1 DAY; ROUTE OF ADMINISTRATION: ORAL
  13. SINEMET [Concomitant]
     Active Substance: CARBIDOPA\LEVODOPA
     Indication: Product used for unknown indication
     Dosage: DOSE: 2 MILLIGRAM; DOSE FORM: TABLET; INTERVAL: 1 DAY; ROUTE OF ADMINISTRATION: ORAL
  14. ASCORBIC ACID [Concomitant]
     Active Substance: ASCORBIC ACID
     Indication: Product used for unknown indication
     Dosage: DOSE: 1 DOSE UNSPECIFIED; DOSE FORM: CHEWABLE TABLET; INTERVAL: 1 DAY; ROUTE OF  ADMINISTRATION: ORAL
  15. ASPIRIN [Concomitant]
     Active Substance: ASPIRIN
     Indication: Product used for unknown indication
     Dosage: DOSE: 1 DOSE UNSPECIFIED; DOSE FORM: TABLET; ROUTE OF ADMINISTRATION: ORAL
  16. ATORVASTATIN [Concomitant]
     Active Substance: ATORVASTATIN
     Indication: Product used for unknown indication
     Dosage: DOSE: 1 DOSE UNSPECIFIED; DOSE FORM: TABLET; INTERVAL: 1 DAY; ROUTE OF ADMINISTRATION: ORAL
  17. CHOLECALCIFEROL [Concomitant]
     Active Substance: CHOLECALCIFEROL
     Indication: Product used for unknown indication
     Dosage: DOSE: 1 DOSE UNSPECIFIED; DOSE FORM: CAPSULE; INTERVAL: 1 DAY; ROUTE OF ADMINISTRATION: ORAL
  18. FLUDROCORTISONE [Concomitant]
     Active Substance: FLUDROCORTISONE
     Indication: Product used for unknown indication
     Dosage: DOSE: 1 DOSE UNSPECIFIED; DOSE FORM: TABLET; ROUTE OF ADMINISTRATION: ORAL
  19. LATANOPROST [Concomitant]
     Active Substance: LATANOPROST
     Indication: Glaucoma
     Dosage: DOSE: 1 DOSE UNSPECIFIED; DOSE FORM: EYE DROPS; INTERVAL: 1 DAY; ROUTE OF ADMINISTRATION:  OPHTHALMIC
  20. LEVOTHYROXINE SODIUM [Concomitant]
     Active Substance: LEVOTHYROXINE SODIUM
     Indication: Product used for unknown indication
     Dosage: DOSE: 1 DOSE UNSPECIFIED; DOSE FORM: TABLET; ROUTE OF ADMINISTRATION: ORAL
  21. LINAGLIPTIN [Concomitant]
     Active Substance: LINAGLIPTIN
     Indication: Product used for unknown indication
     Dosage: DOSE: 1 DOSE UNSPECIFIED; DOSE FORM: TABLET; INTERVAL: 1 DAY; ROUTE OF ADMINISTRATION: ORAL
  22. MAGNESIUM ASPARTATE [Concomitant]
     Active Substance: MAGNESIUM ASPARTATE
     Indication: Blood magnesium abnormal
     Dosage: 2 DOSAGE FORM, UNK
  23. MAGNESIUM ASPARTATE [Concomitant]
     Active Substance: MAGNESIUM ASPARTATE
     Dosage: UNK
  24. MELATONIN [Concomitant]
     Active Substance: MELATONIN
     Indication: Product used for unknown indication
     Dosage: DOSE: 1 DOSE UNSPECIFIED; DOSE FORM: TABLET; INTERVAL: 1 DAY; ROUTE OF ADMINISTRATION: ORAL
  25. PANTOPRAZOLE SODIUM [Concomitant]
     Active Substance: PANTOPRAZOLE SODIUM
     Indication: Product used for unknown indication
     Dosage: DOSE: 1 DOSE UNSPECIFIED; DOSE FORM: TABLET; INTERVAL: 1 DAY; ROUTE OF ADMINISTRATION: ORAL
  26. ACETAMINOPHEN [Concomitant]
     Active Substance: ACETAMINOPHEN
     Indication: Product used for unknown indication
     Dosage: DOSE: 6 DOSE UNSPECIFIED; DOSE FORM: TABLET; INTERVAL: 1 DAY; ROUTE OF ADMINISTRATION: ORAL
  27. SODIUM HYALURONATE [Concomitant]
     Active Substance: HYALURONATE SODIUM
     Indication: Glaucoma
     Dosage: DOSE: 2 DOSE UNSPECIFIED; DOSE FORM: EYE DROPS; ROUTE OF ADMINISTRATION: OPHTHALMIC
  28. SODIUM HYALURONATE [Concomitant]
     Active Substance: HYALURONATE SODIUM
     Indication: Glaucoma
     Dosage: DOSE: 2 DOSE UNSPECIFIED; DOSE FORM: EYE DROPS; INTERVAL: 1 DAY; ROUTE OF ADMINISTRATION:  OPHTHALMIC
  29. TIMOLOL MALEATE [Concomitant]
     Active Substance: TIMOLOL MALEATE
     Indication: Product used for unknown indication

REACTIONS (9)
  - Abnormal behaviour [Unknown]
  - Aspartate aminotransferase increased [Unknown]
  - Blood alkaline phosphatase increased [Unknown]
  - Cyclothymic disorder [Unknown]
  - Delusion [Unknown]
  - Depression [Unknown]
  - Drug ineffective [Unknown]
  - Gamma-glutamyltransferase increased [Unknown]
  - Glomerular filtration rate decreased [Unknown]
